FAERS Safety Report 8503213-2 (Version None)
Quarter: 2012Q2

REPORT INFORMATION
  Report Type: 
  Country: None (occurrence: None)
  Receive Date: 20120405
  Receipt Date: 20100924
  Transmission Date: 20120825
  Serious: Yes (Other)
  Sender: FDA-Public Use
  Company Number: PHEH2010US03749

PATIENT
  Age: 53 Year
  Sex: Female
  Weight: 124 kg

DRUGS (1)
  1. RECLAST [Suspect]
     Indication: OSTEOPOROSIS
     Dosage: INTRAVENOUS
     Route: 042
     Dates: start: 20100823

REACTIONS (7)
  - RASH [None]
  - PAIN [None]
  - VOMITING [None]
  - PYREXIA [None]
  - INFLUENZA LIKE ILLNESS [None]
  - DIARRHOEA [None]
  - HEADACHE [None]
